FAERS Safety Report 21466747 (Version 1)
Quarter: 2022Q4

REPORT INFORMATION
  Report Type: Spontaneous
  Country: US (occurrence: US)
  Receive Date: 20221017
  Receipt Date: 20221017
  Transmission Date: 20230113
  Serious: No
  Sender: FDA-Public Use
  Company Number: US-VIIV HEALTHCARE LIMITED-US2022AMR144873

PATIENT
  Age: 35 Year
  Sex: Male

DRUGS (4)
  1. RILPIVIRINE [Suspect]
     Active Substance: RILPIVIRINE
     Indication: Product used for unknown indication
     Dosage: UNK UNK, Z, EVERY 2 MONTHS, CABOTEGRAVIR 600 MG/3 ML AND RILPIVIRINE 900 MG/ 3 ML
     Route: 065
     Dates: start: 20220806
  2. RILPIVIRINE [Suspect]
     Active Substance: RILPIVIRINE
     Dosage: UNK UNK, Z, EVERY 2 MONTHS, CABOTEGRAVIR 600 MG/3 ML AND RILPIVIRINE 900 MG/ 3 ML
     Route: 065
     Dates: start: 20221006
  3. CABOTEGRAVIR [Suspect]
     Active Substance: CABOTEGRAVIR
     Indication: Product used for unknown indication
     Dosage: UNK UNK, Z, EVERY 2 MONTHS, CABOTEGRAVIR 600 MG/3 ML AND RILPIVIRINE 900 MG/ 3 ML
     Route: 065
     Dates: start: 20220806
  4. CABOTEGRAVIR [Suspect]
     Active Substance: CABOTEGRAVIR
     Dosage: UNK UNK, Z, EVERY 2 MONTHS, CABOTEGRAVIR 600 MG/3 ML AND RILPIVIRINE 900 MG/ 3 ML
     Route: 065
     Dates: start: 20221006

REACTIONS (1)
  - Muscle spasms [Recovered/Resolved]

NARRATIVE: CASE EVENT DATE: 20221006
